FAERS Safety Report 4311812-7 (Version None)
Quarter: 2004Q1

REPORT INFORMATION
  Report Type: 
  Country: None (occurrence: None)
  Receive Date: 20040304
  Receipt Date: 20040224
  Transmission Date: 20041129
  Serious: Yes (Death)
  Sender: FDA-Public Use
  Company Number: WAES 0402USA01726

PATIENT
  Age: 48 Year
  Sex: Female
  Weight: 126 kg

DRUGS (16)
  1. ALBUTEROL SULFATE [Concomitant]
  2. XANAX [Concomitant]
  3. XANAX [Concomitant]
  4. CLOZAPINE [Suspect]
     Indication: SCHIZOAFFECTIVE DISORDER
     Route: 048
     Dates: start: 20030201, end: 20031101
  5. CLOZAPINE [Suspect]
     Route: 048
     Dates: start: 20030201, end: 20031101
  6. CLOZAPINE [Suspect]
     Indication: BIPOLAR DISORDER
     Route: 048
     Dates: start: 20030201, end: 20031101
  7. CLOZAPINE [Suspect]
     Route: 048
     Dates: start: 20030201, end: 20031101
  8. DEPAKOTE [Concomitant]
  9. ZETIA [Suspect]
     Indication: HYPERCHOLESTEROLAEMIA
     Route: 048
     Dates: start: 20031122, end: 20031203
  10. MONOPRIL [Concomitant]
  11. LASIX [Concomitant]
  12. GLUCOTROL [Concomitant]
  13. ATARAX [Concomitant]
  14. MICRO-K [Concomitant]
  15. SEROQUEL [Concomitant]
  16. SEROQUEL [Concomitant]

REACTIONS (3)
  - BACK PAIN [None]
  - DEATH [None]
  - MUSCLE CRAMP [None]
